FAERS Safety Report 19688854 (Version 2)
Quarter: 2021Q3

REPORT INFORMATION
  Report Type: Spontaneous
  Country: US (occurrence: US)
  Receive Date: 20210811
  Receipt Date: 20210924
  Transmission Date: 20211014
  Serious: No
  Sender: FDA-Public Use
  Company Number: US-SA-2021SA261336

PATIENT
  Sex: Female

DRUGS (8)
  1. VITAMIN D3 [Concomitant]
     Active Substance: CHOLECALCIFEROL
  2. NOVOLOG [Concomitant]
     Active Substance: INSULIN ASPART
  3. NATURAL MAGNESIUM [Concomitant]
  4. LANTUS [Concomitant]
     Active Substance: INSULIN GLARGINE
  5. DUPIXENT [Suspect]
     Active Substance: DUPILUMAB
     Indication: ASTHMA
     Dosage: 600 MG, 1X
     Route: 058
  6. ALBERTSONS SINUS [Concomitant]
  7. CALCIUM [Concomitant]
     Active Substance: CALCIUM
  8. DUPIXENT [Suspect]
     Active Substance: DUPILUMAB
     Indication: NEOPLASM MALIGNANT
     Dosage: 300 MG, QOW
     Route: 058

REACTIONS (3)
  - Drug ineffective [Unknown]
  - Product use issue [Unknown]
  - Product use in unapproved indication [Unknown]
